FAERS Safety Report 8812029 (Version 1)
Quarter: 2012Q4

REPORT INFORMATION
  Report Type: Spontaneous
  Country: US (occurrence: None)
  Receive Date: 20120926
  Receipt Date: 20120926
  Transmission Date: 20130627
  Serious: No
  Sender: FDA-Public Use
  Company Number: None

PATIENT
  Age: 62 Year
  Sex: Female

DRUGS (1)
  1. ORENCIA [Suspect]
     Indication: RA
     Dosage: 125 MG QW SQ
     Route: 058
     Dates: start: 20120825, end: 20120918

REACTIONS (5)
  - Cough [None]
  - Vertigo [None]
  - Night sweats [None]
  - Chills [None]
  - Pruritus generalised [None]
